FAERS Safety Report 15965119 (Version 1)
Quarter: 2019Q1

REPORT INFORMATION
  Report Type: Spontaneous
  Country: US (occurrence: US)
  Receive Date: 20190215
  Receipt Date: 20190215
  Transmission Date: 20190418
  Serious: No
  Sender: FDA-Public Use
  Company Number: US-ASTRAZENECA-2019SE12248

PATIENT
  Sex: Female

DRUGS (1)
  1. FASENRA [Suspect]
     Active Substance: BENRALIZUMAB
     Indication: ASTHMA
     Dosage: EVERY FOUR WEEKS
     Route: 051

REACTIONS (5)
  - Peripheral swelling [Unknown]
  - Injection site pruritus [Unknown]
  - Injection site vesicles [Unknown]
  - Erythema [Unknown]
  - Injection site papule [Unknown]
